FAERS Safety Report 11642395 (Version 9)
Quarter: 2019Q4

REPORT INFORMATION
  Report Type: Report from Study
  Country: US (occurrence: US)
  Receive Date: 20151019
  Receipt Date: 20191107
  Transmission Date: 20200122
  Serious: No
  Sender: FDA-Public Use
  Company Number: PHHY2015US123720

PATIENT
  Age: 33 Year
  Sex: Female

DRUGS (1)
  1. GILENYA [Suspect]
     Active Substance: FINGOLIMOD HYDROCHLORIDE
     Indication: MULTIPLE SCLEROSIS
     Dosage: UNK, QD
     Route: 048

REACTIONS (17)
  - Melanocytic naevus [Not Recovered/Not Resolved]
  - Nausea [Recovered/Resolved]
  - Contusion [Unknown]
  - Disturbance in attention [Unknown]
  - Fatigue [Recovered/Resolved]
  - Benign neoplasm [Not Recovered/Not Resolved]
  - Alanine aminotransferase increased [Unknown]
  - Aspartate aminotransferase increased [Unknown]
  - Anxiety [Unknown]
  - Muscle spasms [Unknown]
  - Blood alkaline phosphatase decreased [Unknown]
  - Seasonal allergy [Not Recovered/Not Resolved]
  - Vomiting [Recovered/Resolved]
  - Chest pain [Unknown]
  - Dizziness [Unknown]
  - Rectal discharge [Unknown]
  - Hypoaesthesia [Recovered/Resolved]

NARRATIVE: CASE EVENT DATE: 20150317
